FAERS Safety Report 7930127-9 (Version None)
Quarter: 2011Q4

REPORT INFORMATION
  Report Type: 
  Country: None (occurrence: None)
  Receive Date: 20111117
  Receipt Date: 20111103
  Transmission Date: 20120403
  Serious: Yes (Hospitalization)
  Sender: FDA-Public Use
  Company Number: UTC-012009

PATIENT
  Age: 69 Year
  Sex: Female
  Weight: 65.9 kg

DRUGS (7)
  1. CELLCEPT [Concomitant]
  2. DIURETICS (DIURETICS) [Concomitant]
  3. OXYGEN (OXYGEN) [Concomitant]
  4. REVATIO [Concomitant]
  5. LANOXIN [Concomitant]
  6. REMODULIN [Suspect]
     Indication: COR PULMONALE CHRONIC
     Dosage: 84.96 UG/KG (0.059 UG/KG, 1 IN 1 MIN), INTRAVENOUS
     Route: 042
     Dates: start: 20110713
  7. LETAIRIS [Concomitant]

REACTIONS (4)
  - SYNCOPE [None]
  - LOSS OF CONSCIOUSNESS [None]
  - VASODILATATION [None]
  - CYANOSIS [None]
